FAERS Safety Report 22003327 (Version 3)
Quarter: 2023Q2

REPORT INFORMATION
  Report Type: Spontaneous
  Country: US (occurrence: US)
  Receive Date: 20230217
  Receipt Date: 20230508
  Transmission Date: 20230721
  Serious: No
  Sender: FDA-Public Use
  Company Number: US-AMGEN-USASP2023025903

PATIENT
  Age: 71 Year
  Sex: Male

DRUGS (10)
  1. REPATHA [Suspect]
     Active Substance: EVOLOCUMAB
     Indication: Blood cholesterol abnormal
     Dosage: 140 MILLIGRAM, Q2WK
     Route: 058
     Dates: start: 202212
  2. RELIEF [PARACETAMOL] [Concomitant]
     Active Substance: WITCH HAZEL
     Indication: Product used for unknown indication
     Route: 058
  3. RELIEF [PARACETAMOL] [Concomitant]
     Active Substance: WITCH HAZEL
     Route: 058
  4. RELIEF [PARACETAMOL] [Concomitant]
     Active Substance: WITCH HAZEL
     Route: 058
  5. TUBES [Concomitant]
     Indication: Product used for unknown indication
     Route: 058
  6. TUBES [Concomitant]
     Route: 058
  7. TUBES [Concomitant]
     Route: 058
  8. VITAMINS [Concomitant]
     Active Substance: VITAMINS
     Indication: Product used for unknown indication
     Route: 058
  9. VITAMINS [Concomitant]
     Active Substance: VITAMINS
     Route: 058
  10. VITAMINS [Concomitant]
     Active Substance: VITAMINS
     Route: 058

REACTIONS (16)
  - Vision blurred [Unknown]
  - Feeling abnormal [Unknown]
  - Myalgia [Unknown]
  - Arthralgia [Unknown]
  - Back pain [Unknown]
  - Pain in extremity [Unknown]
  - Quality of life decreased [Unknown]
  - Headache [Unknown]
  - Fatigue [Unknown]
  - Rhinorrhoea [Unknown]
  - Tremor [Unknown]
  - Physiotherapy [Unknown]
  - Incorrect disposal of product [Unknown]
  - Sciatica [Unknown]
  - Muscular weakness [Unknown]
  - Drug ineffective [Unknown]

NARRATIVE: CASE EVENT DATE: 20221201
